FAERS Safety Report 6114946-X (Version None)
Quarter: 2009Q1

REPORT INFORMATION
  Report Type: 
  Country: None (occurrence: None)
  Receive Date: 20090313
  Receipt Date: 20090306
  Transmission Date: 20090719
  Serious: Yes (Other)
  Sender: FDA-Public Use
  Company Number: US-ELI_LILLY_AND_COMPANY-US200903001688

PATIENT
  Sex: Male

DRUGS (1)
  1. HUMALOG [Suspect]
     Indication: DIABETES MELLITUS
     Dosage: 8 U, UNK

REACTIONS (6)
  - AGEUSIA [None]
  - BLOOD GLUCOSE INCREASED [None]
  - DRY THROAT [None]
  - MALIGNANT MELANOMA [None]
  - SENSORY DISTURBANCE [None]
  - WOUND [None]
